FAERS Safety Report 6097681-6 (Version None)
Quarter: 2009Q1

REPORT INFORMATION
  Report Type: 
  Country: None (occurrence: None)
  Receive Date: 20090227
  Receipt Date: 20090216
  Transmission Date: 20090719
  Serious: Yes (Other)
  Sender: FDA-Public Use
  Company Number: TR-ROCHE-615125

PATIENT
  Age: 66 Year
  Sex: Male

DRUGS (6)
  1. CAPECITABINE [Suspect]
     Dosage: DAYS 1-14 OF 21. 5 CYCLES ADMINISTERED.
     Route: 048
     Dates: start: 20040101, end: 20040601
  2. OXALIPLATIN [Suspect]
     Dosage: 5 CYCLES ADMINISTERED.
     Route: 065
     Dates: start: 20040101, end: 20040601
  3. FLUOROURACIL [Suspect]
     Dosage: 400MG/M2 IV BOLUS AND 600MG/M2 CONTINUOUS IV INFUSION FOR 22HOURS. 4 CYCLES ADMINISTERED.
     Route: 042
  4. CALCIUM FOLINATE [Suspect]
     Dosage: 4 CYCLES ADMINISTERED
     Route: 065
  5. IRINOTECAN HCL [Suspect]
     Dosage: 4 CYCLES ADMINISTERED
     Route: 065
  6. RALTITREXED [Suspect]
     Dosage: 2 CYCLES ADMINISTERED
     Route: 065

REACTIONS (1)
  - CHRONIC MYELOID LEUKAEMIA [None]
